FAERS Safety Report 6920127-X (Version None)
Quarter: 2010Q3

REPORT INFORMATION
  Report Type: 
  Country: None (occurrence: None)
  Receive Date: 20100730
  Receipt Date: 20100303
  Transmission Date: 20110219
  Serious: Yes (Other)
  Sender: FDA-Public Use
  Company Number: OMPQ-PR-1003S-0139

PATIENT
  Age: 38 Year
  Sex: Female

DRUGS (1)
  1. OMNIPAQUE [Suspect]
     Indication: PULMONARY EMBOLISM
     Dosage: 100 ML, SINGLE DOSE, I.V.
     Route: 042
     Dates: start: 20100302, end: 20100302

REACTIONS (5)
  - ANAPHYLACTOID REACTION [None]
  - PRURITUS [None]
  - RESPIRATORY DISORDER [None]
  - TACHYCARDIA [None]
  - THROAT TIGHTNESS [None]
